FAERS Safety Report 21650178 (Version 2)
Quarter: 2024Q1

REPORT INFORMATION
  Report Type: Other
  Country: FR (occurrence: FR)
  Receive Date: 20221128
  Receipt Date: 20240119
  Transmission Date: 20240410
  Serious: Yes (Death, Hospitalization)
  Sender: FDA-Public Use
  Company Number: None

PATIENT

DRUGS (2)
  1. CEFIDEROCOL SULFATE TOSYLATE [Suspect]
     Active Substance: CEFIDEROCOL SULFATE TOSYLATE
     Indication: Acinetobacter bacteraemia
     Dosage: 2 G, 1 PER 8 HOUR
     Route: 042
     Dates: start: 20221019, end: 20221020
  2. ACYCLOVIR [Suspect]
     Active Substance: ACYCLOVIR
     Indication: Herpes ophthalmic
     Dosage: 600 MG, 1 PER 8 HOUR
     Route: 042
     Dates: start: 20221024, end: 20221025

REACTIONS (2)
  - Encephalopathy [Fatal]
  - Acute kidney injury [Not Recovered/Not Resolved]

NARRATIVE: CASE EVENT DATE: 20221025
